FAERS Safety Report 5928062-0 (Version None)
Quarter: 2008Q4

REPORT INFORMATION
  Report Type: 
  Country: None (occurrence: None)
  Receive Date: 20081023
  Receipt Date: 20081017
  Transmission Date: 20090506
  Serious: Yes (Death)
  Sender: FDA-Public Use
  Company Number: A0753210A

PATIENT
  Age: 66 Year
  Sex: Female
  Weight: 56.8 kg

DRUGS (2)
  1. AVANDIA [Suspect]
     Dosage: 4MG PER DAY
     Route: 048
     Dates: start: 20030528, end: 20061113
  2. COUMADIN [Concomitant]

REACTIONS (2)
  - ANEURYSM [None]
  - CARDIAC ARREST [None]
